FAERS Safety Report 9628562 (Version 3)
Quarter: 2014Q4

REPORT INFORMATION
  Report Type: Spontaneous
  Country: JP (occurrence: JP)
  Receive Date: 20131017
  Receipt Date: 20141127
  Transmission Date: 20150529
  Serious: Yes (Other)
  Sender: FDA-Public Use
  Company Number: PHHY2013JP114693

PATIENT
  Age: 54 Year
  Sex: Male

DRUGS (6)
  1. TASIGNA [Suspect]
     Active Substance: NILOTINIB
     Indication: CHRONIC MYELOID LEUKAEMIA
     Dosage: 400 MG, PER DAY
     Route: 048
  2. SPRYCEL [Suspect]
     Active Substance: DASATINIB
     Indication: CHRONIC MYELOID LEUKAEMIA
     Dosage: 120 MG, PER DAY
     Route: 048
     Dates: start: 201109
  3. SPRYCEL [Suspect]
     Active Substance: DASATINIB
     Dosage: UNK
     Route: 048
  4. SPRYCEL [Suspect]
     Active Substance: DASATINIB
     Dosage: 50 MG, PER EVERY 2 DAYS
     Route: 048
  5. TASIGNA [Suspect]
     Active Substance: NILOTINIB
     Dosage: UNK
     Route: 065
  6. TASIGNA [Suspect]
     Active Substance: NILOTINIB
     Dosage: 400 MG, TWO TIMES A WEEK
     Route: 048

REACTIONS (9)
  - Thrombocytopenia [Unknown]
  - Bloody discharge [Unknown]
  - Enterocolitis haemorrhagic [Unknown]
  - Pyrexia [Unknown]
  - Myalgia [Unknown]
  - Therapeutic response decreased [Unknown]
  - Hyperthermia [Unknown]
  - Anaemia [Unknown]
  - Cytomegalovirus colitis [Recovered/Resolved]
